FAERS Safety Report 6274077-5 (Version None)
Quarter: 2009Q3

REPORT INFORMATION
  Report Type: 
  Country: None (occurrence: None)
  Receive Date: 20090720
  Receipt Date: 20090707
  Transmission Date: 20100115
  Serious: Yes (Other)
  Sender: FDA-Public Use
  Company Number: PHEH2008US09977

PATIENT
  Sex: Male

DRUGS (9)
  1. ZOMETA [Suspect]
     Dosage: UNK
  2. VIADUR [Concomitant]
  3. FLONASE [Concomitant]
  4. LIPITOR [Concomitant]
  5. ZETIA [Concomitant]
  6. PREDNISONE TAB [Concomitant]
  7. CALCIUM [Concomitant]
  8. VITAMIN D [Concomitant]
  9. MULTIVITAMIN ^LAPPE^ [Concomitant]

REACTIONS (20)
  - ABNORMAL LOSS OF WEIGHT [None]
  - ANXIETY [None]
  - ARTHRALGIA [None]
  - ATELECTASIS [None]
  - DECREASED INTEREST [None]
  - DIVERTICULUM [None]
  - GENERAL PHYSICAL HEALTH DETERIORATION [None]
  - ILIAC ARTERY STENOSIS [None]
  - METASTATIC NEOPLASM [None]
  - MYALGIA [None]
  - OSTEONECROSIS [None]
  - PAIN [None]
  - PERIODONTITIS [None]
  - PLEURAL EFFUSION [None]
  - PROSTATE CANCER [None]
  - PULMONARY FIBROSIS [None]
  - RENAL MASS [None]
  - RETROPERITONEAL LYMPHADENOPATHY [None]
  - SPINAL OSTEOARTHRITIS [None]
  - SWELLING [None]
